FAERS Safety Report 4307857-3 (Version None)
Quarter: 2004Q1

REPORT INFORMATION
  Report Type: 
  Country: None (occurrence: None)
  Receive Date: 20040226
  Receipt Date: 20030521
  Transmission Date: 20041129
  Serious: Yes (Hospitalization)
  Sender: FDA-Public Use
  Company Number: 2003161049US

PATIENT
  Age: 50 Year
  Sex: Female
  Weight: 43.1 kg

DRUGS (7)
  1. CELEBREX [Suspect]
     Indication: RHEUMATOID ARTHRITIS
     Dosage: ORAL
     Route: 048
  2. FOSAMAX [Concomitant]
  3. THEOPHYLLINE [Concomitant]
  4. PROVENTIL /OLD FORM/(SALBUTAMOL) [Concomitant]
  5. VITAMIN B COMPLEX CAP [Concomitant]
  6. LASIX [Concomitant]
  7. PAIN MEDICATIONS [Concomitant]

REACTIONS (3)
  - DYSPEPSIA [None]
  - GASTROINTESTINAL HAEMORRHAGE [None]
  - VOMITING [None]
